FAERS Safety Report 18721823 (Version 1)
Quarter: 2021Q1

REPORT INFORMATION
  Report Type: Spontaneous
  Country: US (occurrence: US)
  Receive Date: 20210111
  Receipt Date: 20210111
  Transmission Date: 20210419
  Serious: Yes (Other)
  Sender: FDA-Public Use
  Company Number: US-SPECGX-T202002951

PATIENT
  Age: 70 Year
  Sex: Female

DRUGS (1)
  1. METHYLPHENIDATE HYDROCHLORIDE EXTENDED RELEASE TABLETS [Suspect]
     Active Substance: METHYLPHENIDATE HYDROCHLORIDE
     Indication: MENTAL IMPAIRMENT
     Dosage: UNK
     Route: 065

REACTIONS (5)
  - Acute pulmonary oedema [Unknown]
  - Acute kidney injury [Recovering/Resolving]
  - Antiphospholipid syndrome [Unknown]
  - Labile hypertension [Unknown]
  - Urinary tract infection bacterial [Unknown]
